FAERS Safety Report 24873316 (Version 3)
Quarter: 2025Q1

REPORT INFORMATION
  Report Type: Spontaneous
  Country: US (occurrence: US)
  Receive Date: 20250122
  Receipt Date: 20250306
  Transmission Date: 20250409
  Serious: No
  Sender: BRISTOL-MYERS SQUIBB COMPANY
  Company Number: US-BRISTOL-MYERS SQUIBB COMPANY-2025-009558

PATIENT
  Age: 81 Year
  Sex: Female
  Weight: 54.9 kg

DRUGS (2)
  1. INREBIC [Suspect]
     Active Substance: FEDRATINIB HYDROCHLORIDE
     Indication: Polycythaemia vera
     Dosage: 400 MG ONCE DAILY
     Route: 048
  2. INREBIC [Suspect]
     Active Substance: FEDRATINIB HYDROCHLORIDE
     Dosage: 400 MG ONCE DAILY
     Route: 048

REACTIONS (3)
  - Increased tendency to bruise [Unknown]
  - Platelet count decreased [Unknown]
  - Fatigue [Recovering/Resolving]
